FAERS Safety Report 10075916 (Version 3)
Quarter: 2014Q2

REPORT INFORMATION
  Report Type: Spontaneous
  Country: FR (occurrence: FR)
  Receive Date: 20140414
  Receipt Date: 20140417
  Transmission Date: 20141212
  Serious: Yes (Death, Hospitalization, Other)
  Sender: FDA-Public Use
  Company Number: FR-PFIZER INC-2008045545

PATIENT
  Age: 84 Year
  Sex: Male

DRUGS (4)
  1. ALDACTONE [Suspect]
     Route: 048
     Dates: end: 20080510
  2. COVERSYL [Suspect]
     Indication: CARDIAC FAILURE
     Route: 048
     Dates: end: 20080509
  3. LASILIX [Suspect]
     Indication: CARDIAC FAILURE
     Route: 048
  4. XATRAL [Suspect]
     Route: 048
     Dates: end: 20080509

REACTIONS (3)
  - Death [Fatal]
  - Hepatitis [Unknown]
  - Cholangiocarcinoma [Unknown]
